FAERS Safety Report 9679334 (Version 1)
Quarter: 2013Q4

REPORT INFORMATION
  Report Type: Spontaneous
  Country: US (occurrence: US)
  Receive Date: 20131109
  Receipt Date: 20131109
  Transmission Date: 20140711
  Serious: No
  Sender: FDA-Public Use
  Company Number: US-SANOFI-AVENTIS-2013SA003292

PATIENT
  Age: 51 Year
  Sex: Female
  Weight: 49.89 kg

DRUGS (2)
  1. ALLEGRA-D, 24 HR [Suspect]
     Indication: NASOPHARYNGITIS
     Route: 048
     Dates: start: 20130110, end: 20130110
  2. ALLEGRA-D, 24 HR [Suspect]
     Indication: NASAL CONGESTION
     Route: 048
     Dates: start: 20130110, end: 20130110

REACTIONS (4)
  - Heart rate increased [Recovered/Resolved]
  - Palpitations [Recovered/Resolved]
  - Off label use [Unknown]
  - Dizziness [Not Recovered/Not Resolved]
